FAERS Safety Report 14261630 (Version 1)
Quarter: 2017Q4

REPORT INFORMATION
  Report Type: Spontaneous
  Country: US (occurrence: US)
  Receive Date: 20171208
  Receipt Date: 20171208
  Transmission Date: 20180321
  Serious: Yes (Other)
  Sender: FDA-Public Use
  Company Number: None

PATIENT
  Sex: Female
  Weight: 112.5 kg

DRUGS (1)
  1. NEUPRO [Suspect]
     Active Substance: ROTIGOTINE
     Indication: RESTLESS LEGS SYNDROME
     Dosage: ?          QUANTITY:1 PATCH(ES);?
     Route: 062
     Dates: start: 20171121, end: 20171207

REACTIONS (1)
  - Product adhesion issue [None]

NARRATIVE: CASE EVENT DATE: 20171121
